FAERS Safety Report 7331529-4 (Version None)
Quarter: 2011Q1

REPORT INFORMATION
  Report Type: 
  Country: None (occurrence: None)
  Receive Date: 20110228
  Receipt Date: 20110228
  Transmission Date: 20110831
  Serious: Yes (Other)
  Sender: FDA-Public Use
  Company Number: None

PATIENT
  Age: 21 Year
  Sex: Female
  Weight: 65.9 kg

DRUGS (1)
  1. PRISTIQ [Suspect]
     Indication: DEPRESSED MOOD
     Dates: start: 20101220, end: 20101228

REACTIONS (1)
  - MUSCLE TWITCHING [None]
